FAERS Safety Report 18995719 (Version 1)
Quarter: 2021Q1

REPORT INFORMATION
  Report Type: Spontaneous
  Country: US (occurrence: US)
  Receive Date: 20210310
  Receipt Date: 20210310
  Transmission Date: 20210420
  Serious: No
  Sender: FDA-Public Use
  Company Number: US-LUPIN PHARMACEUTICALS INC.-2021-03040

PATIENT
  Age: 70 Year
  Sex: Female

DRUGS (1)
  1. QUININE [Suspect]
     Active Substance: QUININE
     Indication: MALARIA
     Dosage: UNK
     Route: 030

REACTIONS (4)
  - Injection site swelling [Recovered/Resolved]
  - Hypoaesthesia [Recovered/Resolved]
  - Product administered at inappropriate site [Unknown]
  - Neuropathic ulcer [Recovered/Resolved]
